FAERS Safety Report 21309556 (Version 2)
Quarter: 2022Q3

REPORT INFORMATION
  Report Type: Spontaneous
  Country: DE (occurrence: DE)
  Receive Date: 20220908
  Receipt Date: 20220915
  Transmission Date: 20221027
  Serious: Yes (Other)
  Sender: FDA-Public Use
  Company Number: DE-GILEAD-2022-0596799

PATIENT
  Age: 30 Year
  Sex: Female

DRUGS (6)
  1. BULEVIRTIDE [Suspect]
     Active Substance: BULEVIRTIDE
     Indication: Hepatitis D
     Dosage: UNK
     Route: 065
  2. BULEVIRTIDE [Suspect]
     Active Substance: BULEVIRTIDE
     Indication: Hepatitis B
  3. VIREAD [Suspect]
     Active Substance: TENOFOVIR DISOPROXIL FUMARATE
     Indication: Hepatitis B
     Dosage: 245 MG
     Route: 048
  4. VIREAD [Suspect]
     Active Substance: TENOFOVIR DISOPROXIL FUMARATE
     Indication: Hepatitis D
  5. PEGYLATED INTERFERON ALPHA NOS [Suspect]
     Active Substance: PEGINTERFERON ALFA-2A OR PEGINTERFERON ALFA-2B
     Indication: Hepatitis B
     Dosage: 180 UG, Q1WK
     Route: 058
  6. PEGYLATED INTERFERON ALPHA NOS [Suspect]
     Active Substance: PEGINTERFERON ALFA-2A OR PEGINTERFERON ALFA-2B
     Indication: Hepatitis D
     Dosage: 90 UG, Q1WK
     Route: 058

REACTIONS (7)
  - Pancytopenia [Unknown]
  - Bone pain [Unknown]
  - Decreased appetite [Unknown]
  - Headache [Unknown]
  - Dysgeusia [Unknown]
  - Depressive symptom [Unknown]
  - Pruritus [Unknown]
